FAERS Safety Report 25675628 (Version 2)
Quarter: 2025Q3

REPORT INFORMATION
  Report Type: Spontaneous
  Country: JP (occurrence: JP)
  Receive Date: 20250813
  Receipt Date: 20250820
  Transmission Date: 20251020
  Serious: Yes (Death, Life-Threatening, Other)
  Sender: PFIZER
  Company Number: JP-PFIZER INC-PV202500097198

PATIENT
  Age: 77 Year
  Sex: Male

DRUGS (5)
  1. BEVACIZUMAB [Suspect]
     Active Substance: BEVACIZUMAB
     Indication: Hepatocellular carcinoma
  2. ATEZOLIZUMAB [Suspect]
     Active Substance: ATEZOLIZUMAB
     Indication: Hepatocellular carcinoma
  3. APIXABAN [Concomitant]
     Active Substance: APIXABAN
  4. TOLVAPTAN [Concomitant]
     Active Substance: TOLVAPTAN
  5. ALBUMIN HUMAN [Concomitant]
     Active Substance: ALBUMIN HUMAN

REACTIONS (3)
  - Portal vein thrombosis [Fatal]
  - Multiple organ dysfunction syndrome [Fatal]
  - Off label use [Unknown]
